FAERS Safety Report 6274129-X (Version None)
Quarter: 2009Q3

REPORT INFORMATION
  Report Type: 
  Country: None (occurrence: None)
  Receive Date: 20090720
  Receipt Date: 20090708
  Transmission Date: 20100115
  Serious: Yes (Other)
  Sender: FDA-Public Use
  Company Number: PHHY2009JP20194

PATIENT
  Sex: Female
  Weight: 50 kg

DRUGS (10)
  1. ZOMETA [Suspect]
     Indication: METASTASES TO BONE
     Dosage: UNK
     Route: 042
     Dates: start: 20060816, end: 20090430
  2. ZOMETA [Suspect]
     Indication: MULTIPLE MYELOMA
     Dosage: 4 MG (PER ADMINISTRATION)
     Route: 042
     Dates: end: 20090522
  3. GASTER D [Concomitant]
     Dosage: 40 MG
     Route: 048
     Dates: start: 20060816
  4. MUCOSTA [Concomitant]
     Dosage: 300 MG
     Route: 048
     Dates: start: 20060816
  5. ALOSITOL [Concomitant]
     Dosage: 100 MG
     Route: 048
     Dates: start: 20060816
  6. BAKTAR [Concomitant]
     Dosage: UNK
     Route: 048
     Dates: start: 20060816
  7. SELTOUCH [Concomitant]
     Dosage: UNK
     Route: 062
     Dates: start: 20060816
  8. DIFLUCAN [Concomitant]
     Dosage: 200 MG
     Route: 048
     Dates: start: 20060906
  9. ALKERAN [Concomitant]
     Dosage: 12 MG
     Route: 048
     Dates: start: 20060906
  10. PREDNISOLONE [Concomitant]
     Dosage: 80 MG
     Route: 048
     Dates: start: 20060906

REACTIONS (5)
  - BONE DISORDER [None]
  - OSTEONECROSIS [None]
  - PRIMARY SEQUESTRUM [None]
  - SEQUESTRECTOMY [None]
  - SWELLING [None]
